FAERS Safety Report 8363218-1 (Version None)
Quarter: 2012Q2

REPORT INFORMATION
  Report Type: 
  Country: None (occurrence: None)
  Receive Date: 20120516
  Receipt Date: 20120510
  Transmission Date: 20120825
  Serious: Yes (Other)
  Sender: FDA-Public Use
  Company Number: US-PFIZER INC-2012115087

PATIENT
  Sex: Female
  Weight: 81.6 kg

DRUGS (11)
  1. SERTRALINE [Concomitant]
     Dosage: UNK
  2. LISINOPRIL [Concomitant]
     Dosage: UNK
  3. KLOR-CON [Concomitant]
     Dosage: UNK
  4. GABAPENTIN [Suspect]
     Indication: PAIN
     Dosage: 100 MG, 1X/DAY
     Route: 048
     Dates: start: 20110101
  5. LIPITOR [Concomitant]
     Dosage: UNK
  6. GABAPENTIN [Suspect]
     Dosage: 100 MG, ALTERNATE DAY
     Dates: end: 20120101
  7. VICODIN [Concomitant]
     Dosage: UNK
  8. GLIPIZIDE [Concomitant]
     Indication: DIABETES MELLITUS
     Dosage: 5 MG, 1X/DAY
  9. SOTALOL [Concomitant]
     Dosage: UNK
  10. GABAPENTIN [Suspect]
     Dosage: 100 MG, 4X/DAY
     Route: 048
     Dates: end: 20120101
  11. GABAPENTIN [Suspect]
     Dosage: 100 MG, 1X/DAY
     Route: 048
     Dates: start: 20120101

REACTIONS (5)
  - FEELING ABNORMAL [None]
  - SUICIDE ATTEMPT [None]
  - DEPRESSION [None]
  - SOMNOLENCE [None]
  - CARDIOVASCULAR DISORDER [None]
